FAERS Safety Report 4353868-1 (Version None)
Quarter: 2004Q2

REPORT INFORMATION
  Report Type: 
  Country: None (occurrence: None)
  Receive Date: 20040503
  Receipt Date: 20040421
  Transmission Date: 20050107
  Serious: Yes (Life-Threatening, Hospitalization)
  Sender: FDA-Public Use
  Company Number: EMADSS2003001928

PATIENT
  Age: 41 Year
  Sex: Female

DRUGS (3)
  1. REMICADE [Suspect]
     Indication: CROHN'S DISEASE
     Dosage: 300 MG, INTRAVENOUS DRIP
     Route: 041
     Dates: start: 20021213, end: 20021213
  2. IMURAN (AZATHIOPRINE) UNSPECIFIED [Concomitant]
  3. PREDNISOLONE [Concomitant]

REACTIONS (1)
  - MENINGITIS LISTERIA [None]
